FAERS Safety Report 20089980 (Version 1)
Quarter: 2021Q4

REPORT INFORMATION
  Report Type: Spontaneous
  Country: US (occurrence: US)
  Receive Date: 20211119
  Receipt Date: 20211119
  Transmission Date: 20220304
  Serious: No
  Sender: FDA-Public Use
  Company Number: US-JNJFOC-20211119360

PATIENT
  Sex: Male

DRUGS (2)
  1. STELARA [Interacting]
     Active Substance: USTEKINUMAB
     Indication: Crohn^s disease
     Route: 058
     Dates: start: 2020
  2. DUPIXENT [Interacting]
     Active Substance: DUPILUMAB
     Indication: Nasal polyps

REACTIONS (4)
  - Presyncope [Unknown]
  - Dizziness [Unknown]
  - Palpitations [Unknown]
  - Drug interaction [Unknown]
